FAERS Safety Report 10897003 (Version 1)
Quarter: 2015Q1

REPORT INFORMATION
  Report Type: Spontaneous
  Country: US (occurrence: None)
  Receive Date: 20150302
  Receipt Date: 20150302
  Transmission Date: 20150721
  Serious: Yes (Life-Threatening, Hospitalization)
  Sender: FDA-Public Use
  Company Number: None

PATIENT
  Age: 93 Year
  Sex: Female
  Weight: 62 kg

DRUGS (10)
  1. METOPROLOL [Concomitant]
     Active Substance: METOPROLOL
  2. BIMATOPROST. [Concomitant]
     Active Substance: BIMATOPROST
  3. ZOLPIDEM [Suspect]
     Active Substance: ZOLPIDEM\ZOLPIDEM TARTRATE
     Indication: SLEEP DISORDER
     Dosage: 1 TABLET QD ORAL
     Route: 048
  4. MIRALAX [Concomitant]
     Active Substance: POLYETHYLENE GLYCOL 3350
  5. TRAMADOL [Concomitant]
     Active Substance: TRAMADOL
  6. LISINOPRIL. [Concomitant]
     Active Substance: LISINOPRIL
  7. LIDODERM [Concomitant]
     Active Substance: LIDOCAINE
  8. ASPIRIN. [Concomitant]
     Active Substance: ASPIRIN
  9. BRIMONIDINE [Concomitant]
     Active Substance: BRIMONIDINE\BRIMONIDINE TARTRATE
  10. CYANOCOBALAMIN. [Concomitant]
     Active Substance: CYANOCOBALAMIN

REACTIONS (14)
  - Memory impairment [None]
  - Fall [None]
  - Blood pressure increased [None]
  - Unresponsive to stimuli [None]
  - Constipation [None]
  - Pleural effusion [None]
  - Arrhythmia [None]
  - Therapy change [None]
  - Orthostatic hypotension [None]
  - Oedema peripheral [None]
  - Pollakiuria [None]
  - Angiopathy [None]
  - Urinary tract infection [None]
  - Adverse drug reaction [None]

NARRATIVE: CASE EVENT DATE: 20140619
